FAERS Safety Report 11401816 (Version 1)
Quarter: 2015Q3

REPORT INFORMATION
  Report Type: Spontaneous
  Country: US (occurrence: US)
  Receive Date: 20150821
  Receipt Date: 20150821
  Transmission Date: 20151125
  Serious: Yes (Other)
  Sender: FDA-Public Use
  Company Number: US-ASTRAZENECA-2015SE79063

PATIENT
  Age: 25993 Day
  Sex: Female
  Weight: 56.7 kg

DRUGS (9)
  1. PRAVASTATIN [Concomitant]
     Active Substance: PRAVASTATIN\PRAVASTATIN SODIUM
     Route: 065
     Dates: start: 20150427, end: 20150715
  2. PANTOPRAZOLE [Concomitant]
     Active Substance: PANTOPRAZOLE SODIUM
     Indication: GASTROOESOPHAGEAL REFLUX DISEASE
     Route: 065
     Dates: start: 2013
  3. FLUOXETINE [Concomitant]
     Active Substance: FLUOXETINE\FLUOXETINE HYDROCHLORIDE
     Indication: DEPRESSION
     Route: 065
     Dates: start: 1987
  4. CIPRO [Suspect]
     Active Substance: CIPROFLOXACIN HYDROCHLORIDE
     Indication: CYSTITIS
     Route: 065
     Dates: start: 20150723, end: 20150730
  5. IRON [Concomitant]
     Active Substance: IRON
     Indication: ANAEMIA
     Route: 065
     Dates: start: 20150720
  6. BRILINTA [Suspect]
     Active Substance: TICAGRELOR
     Indication: STENT PLACEMENT
     Route: 048
     Dates: start: 20150427, end: 20150812
  7. METHOCARBAMOL. [Concomitant]
     Active Substance: METHOCARBAMOL
     Route: 065
  8. DILTIAZEM [Suspect]
     Active Substance: DILTIAZEM
     Indication: ANGINA UNSTABLE
     Route: 048
     Dates: start: 201506, end: 201506
  9. ASPIRIN. [Concomitant]
     Active Substance: ASPIRIN
     Route: 065
     Dates: start: 20150427

REACTIONS (17)
  - Asthenia [Not Recovered/Not Resolved]
  - Pelvic pain [Unknown]
  - Faeces discoloured [Unknown]
  - Cystitis [Unknown]
  - Dysuria [Not Recovered/Not Resolved]
  - Groin pain [Unknown]
  - Sleep disorder due to general medical condition, insomnia type [Unknown]
  - Proctalgia [Unknown]
  - Depression [Unknown]
  - Angina unstable [Unknown]
  - Blood iron decreased [Unknown]
  - Abdominal pain [Not Recovered/Not Resolved]
  - Anaemia [Unknown]
  - Intentional product misuse [Unknown]
  - Rectal spasm [Unknown]
  - Anal pruritus [Recovered/Resolved]
  - Visual acuity reduced [Unknown]

NARRATIVE: CASE EVENT DATE: 201505
